FAERS Safety Report 6524750-6 (Version None)
Quarter: 2009Q4

REPORT INFORMATION
  Report Type: 
  Country: None (occurrence: None)
  Receive Date: 20091222
  Receipt Date: 20091207
  Transmission Date: 20100525
  Serious: Yes (Other)
  Sender: FDA-Public Use
  Company Number: 8055219

PATIENT
  Sex: Male
  Weight: 42 kg

DRUGS (5)
  1. KEPPRA [Suspect]
     Indication: CONVULSION
     Dosage: 2750 MG, 1500MG IN THE MORNING AND 11250 IN THE EVENING ORAL
     Route: 048
     Dates: start: 20090901
  2. TRILEPTAL [Suspect]
     Indication: CONVULSION
     Dosage: 150 MG BID ORAL, 300 MG BID ORAL, 450 MG BID ORAL
     Route: 048
     Dates: start: 20091024, end: 20091106
  3. TRILEPTAL [Suspect]
     Indication: CONVULSION
     Dosage: 150 MG BID ORAL, 300 MG BID ORAL, 450 MG BID ORAL
     Route: 048
     Dates: start: 20091106, end: 20091112
  4. TRILEPTAL [Suspect]
     Indication: CONVULSION
     Dosage: 150 MG BID ORAL, 300 MG BID ORAL, 450 MG BID ORAL
     Route: 048
     Dates: start: 20091112
  5. TEMODAL [Concomitant]

REACTIONS (3)
  - DRUG EFFECT DECREASED [None]
  - INHIBITORY DRUG INTERACTION [None]
  - VOMITING [None]
